FAERS Safety Report 24005601 (Version 1)
Quarter: 2024Q2

REPORT INFORMATION
  Report Type: Spontaneous
  Country: JP (occurrence: JP)
  Receive Date: 20240624
  Receipt Date: 20240624
  Transmission Date: 20240716
  Serious: Yes (Hospitalization)
  Sender: FDA-Public Use
  Company Number: JP-ELI_LILLY_AND_COMPANY-JP202404018488

PATIENT
  Age: 65 Year
  Sex: Male

DRUGS (2)
  1. OMVOH [Suspect]
     Active Substance: MIRIKIZUMAB-MRKZ
     Indication: Colitis ulcerative
     Dosage: 300 MG, UNKNOWN
     Route: 041
     Dates: start: 20231226
  2. PREDNISOLONE [Concomitant]
     Active Substance: PREDNISOLONE

REACTIONS (2)
  - Pneumonia bacterial [Recovered/Resolved]
  - COVID-19 [Recovered/Resolved]

NARRATIVE: CASE EVENT DATE: 20240214
